FAERS Safety Report 6970096-1 (Version None)
Quarter: 2010Q3

REPORT INFORMATION
  Report Type: 
  Country: None (occurrence: None)
  Receive Date: 20100823
  Receipt Date: 20100329
  Transmission Date: 20110219
  Serious: No
  Sender: FDA-Public Use
  Company Number: 009539

PATIENT
  Sex: Female

DRUGS (6)
  1. CIMZIA [Suspect]
     Indication: CROHN'S DISEASE
     Dosage: RECIEVED INITIAL EVERY 2- WEEK DOSE SUBCUTANEOUS
     Route: 058
  2. PREDNISONE TAB [Concomitant]
  3. PENTASA [Concomitant]
  4. CALCIUM W/VITAMIN C/VITAMIN D [Concomitant]
  5. VICODIN [Concomitant]
  6. TIRGON SUPPOSITORY [Concomitant]

REACTIONS (5)
  - CROHN'S DISEASE [None]
  - DIARRHOEA [None]
  - DRUG INEFFECTIVE [None]
  - FREQUENT BOWEL MOVEMENTS [None]
  - UPPER RESPIRATORY TRACT INFECTION [None]
